FAERS Safety Report 6262816-9 (Version None)
Quarter: 2009Q3

REPORT INFORMATION
  Report Type: 
  Country: None (occurrence: None)
  Receive Date: 20090708
  Receipt Date: 20090624
  Transmission Date: 20100115
  Serious: Yes (Hospitalization)
  Sender: FDA-Public Use
  Company Number: 8041225

PATIENT
  Age: 40 Year
  Sex: Male
  Weight: 64.9 kg

DRUGS (11)
  1. CDP870 [Suspect]
     Indication: RHEUMATOID ARTHRITIS
     Dosage: 400 MG / M SC
     Route: 058
     Dates: start: 20040218
  2. CEFDINIR [Concomitant]
  3. PREDNISONE TAB [Concomitant]
  4. MIRAPEX [Concomitant]
  5. METHOTREXATE [Concomitant]
  6. MOBIC [Concomitant]
  7. FLEXERIL [Concomitant]
  8. XANAX [Concomitant]
  9. AMBIEN [Concomitant]
  10. LEXAPRO [Concomitant]
  11. IBUPROFEN [Concomitant]

REACTIONS (9)
  - DEHYDRATION [None]
  - DIZZINESS POSTURAL [None]
  - DYSPHAGIA [None]
  - HERPES SIMPLEX [None]
  - HYPOPHAGIA [None]
  - MOUTH ULCERATION [None]
  - ORAL PAIN [None]
  - PENILE ULCERATION [None]
  - WEIGHT DECREASED [None]
